FAERS Safety Report 21808429 (Version 1)
Quarter: 2023Q1

REPORT INFORMATION
  Report Type: Spontaneous
  Country: US (occurrence: US)
  Receive Date: 20230103
  Receipt Date: 20230103
  Transmission Date: 20230418
  Serious: No
  Sender: FDA-Public Use
  Company Number: US-APOTEX-2022AP013881

PATIENT
  Sex: Female

DRUGS (1)
  1. CARBAMAZEPINE [Suspect]
     Active Substance: CARBAMAZEPINE
     Indication: Seizure
     Dosage: 3 DOSAGE FORM, BID
     Route: 065

REACTIONS (2)
  - Product physical issue [Unknown]
  - Headache [Unknown]

NARRATIVE: CASE EVENT DATE: 20220101
